FAERS Safety Report 23918773 (Version 2)
Quarter: 2024Q2

REPORT INFORMATION
  Report Type: Other
  Country: DE (occurrence: None)
  Receive Date: 20240530
  Receipt Date: 20240604
  Transmission Date: 20240716
  Serious: Yes (Hospitalization)
  Sender: FDA-Public Use
  Company Number: DE-ROCHE-3570245

PATIENT
  Age: 41 Year
  Sex: Male

DRUGS (5)
  1. RITUXIMAB [Suspect]
     Active Substance: RITUXIMAB
     Indication: Follicular lymphoma
     Route: 041
     Dates: start: 20240222, end: 20240314
  2. CYCLOPHOSPHAMIDE [Suspect]
     Active Substance: CYCLOPHOSPHAMIDE
     Indication: Follicular lymphoma
     Route: 042
     Dates: start: 20240222, end: 20240314
  3. DOXORUBICIN [Suspect]
     Active Substance: DOXORUBICIN
     Indication: Follicular lymphoma
     Route: 042
     Dates: start: 20240222, end: 20240314
  4. VINCRISTINE [Suspect]
     Active Substance: VINCRISTINE
     Indication: Follicular lymphoma
     Route: 042
     Dates: start: 20240222, end: 20240314
  5. PREDNISOLONE [Suspect]
     Active Substance: PREDNISOLONE
     Indication: Follicular lymphoma
     Route: 042
     Dates: start: 20240222, end: 20240314

REACTIONS (8)
  - Abdominal pain [Recovered/Resolved]
  - Tumour perforation [Recovered/Resolved]
  - Vomiting [Recovered/Resolved]
  - Sinus bradycardia [Unknown]
  - Ventricular extrasystoles [Unknown]
  - Leukocytosis [Unknown]
  - C-reactive protein increased [Unknown]
  - Gastroenteritis [Unknown]

NARRATIVE: CASE EVENT DATE: 20240313
